FAERS Safety Report 13806515 (Version 1)
Quarter: 2017Q3

REPORT INFORMATION
  Report Type: Spontaneous
  Country: US (occurrence: US)
  Receive Date: 20170728
  Receipt Date: 20170728
  Transmission Date: 20171127
  Serious: No
  Sender: FDA-Public Use
  Company Number: US-GILEAD-2017-0285559

PATIENT
  Age: 62 Year
  Sex: Male

DRUGS (3)
  1. RANEXA [Suspect]
     Active Substance: RANOLAZINE
     Dosage: 500 MG, UNK
     Route: 065
  2. RANEXA [Suspect]
     Active Substance: RANOLAZINE
     Indication: PRODUCT USED FOR UNKNOWN INDICATION
     Dosage: 1000 MG, UNK
     Route: 065
  3. RANEXA [Suspect]
     Active Substance: RANOLAZINE
     Dosage: 500 MG, UNK
     Route: 065

REACTIONS (1)
  - Oedema peripheral [Recovered/Resolved]
